FAERS Safety Report 9437948 (Version 1)
Quarter: 2013Q3

REPORT INFORMATION
  Report Type: Spontaneous
  Country: US (occurrence: US)
  Receive Date: 20130802
  Receipt Date: 20130802
  Transmission Date: 20140515
  Serious: No
  Sender: FDA-Public Use
  Company Number: US-BRISTOL-MYERS SQUIBB COMPANY-18786814

PATIENT
  Age: 59 Year
  Sex: Male

DRUGS (24)
  1. COUMADIN [Suspect]
  2. FENTANYL [Suspect]
  3. VERSED [Suspect]
  4. OXYGEN [Concomitant]
     Indication: RESPIRATORY DISORDER
  5. ATROVENT INHALER [Concomitant]
     Indication: CHRONIC OBSTRUCTIVE PULMONARY DISEASE
  6. BUDESONIDE INHALER [Concomitant]
     Indication: CHRONIC OBSTRUCTIVE PULMONARY DISEASE
  7. FORMOTEROL FUMARATE [Concomitant]
     Indication: CHRONIC OBSTRUCTIVE PULMONARY DISEASE
  8. ALBUTEROL [Concomitant]
     Indication: CHRONIC OBSTRUCTIVE PULMONARY DISEASE
  9. APO-SALVENT [Concomitant]
     Indication: RESPIRATORY DISORDER
     Dosage: 1 DF: 90MCG/ACUTATION
  10. LISINOPRIL [Concomitant]
     Indication: BLOOD PRESSURE
  11. VYTORIN 10/40 [Concomitant]
     Indication: BLOOD CHOLESTEROL
     Dosage: 1 DF:10/40
  12. PLAVIX [Concomitant]
     Indication: BLOOD CHOLESTEROL
  13. OMEPRAZOLE [Concomitant]
  14. TERAZOSIN [Concomitant]
     Indication: BENIGN PROSTATIC HYPERPLASIA
     Dosage: Q PM
  15. TESTOSTERONE [Concomitant]
     Indication: BLOOD TESTOSTERONE DECREASED
     Dosage: 1 DF: 1.5ML 200MG DEEP IM.
     Route: 030
  16. CLONAZEPAM [Concomitant]
     Indication: ANXIETY
  17. PROZAC [Concomitant]
     Indication: ANXIETY
  18. AMBIEN [Concomitant]
     Indication: SLEEP DISORDER
  19. LORTAB [Concomitant]
     Indication: PAIN
     Dosage: 1DF: 10-500MG
  20. MS CONTIN [Concomitant]
     Indication: PAIN
     Dosage: ER.?1@BEDTIME
  21. LYRICA [Concomitant]
     Indication: NEURALGIA
     Dosage: QAM-BID PM
  22. FLEXERIL [Concomitant]
     Indication: MUSCLE SPASMS
  23. PHENERGAN [Concomitant]
     Indication: NAUSEA
  24. METOCLOPRAMIDE [Concomitant]
     Indication: GASTROOESOPHAGEAL REFLUX DISEASE
     Dosage: QPM

REACTIONS (1)
  - Hypersensitivity [Unknown]
